FAERS Safety Report 25153730 (Version 1)
Quarter: 2025Q2

REPORT INFORMATION
  Report Type: Report from Study
  Country: US (occurrence: US)
  Receive Date: 20250403
  Receipt Date: 20250403
  Transmission Date: 20250717
  Serious: Yes (Hospitalization, Other)
  Sender: ABBVIE
  Company Number: US-ABBVIE-6201650

PATIENT
  Age: 68 Year
  Sex: Female

DRUGS (3)
  1. HUMIRA [Suspect]
     Active Substance: ADALIMUMAB
     Indication: Product used for unknown indication
     Route: 058
     Dates: start: 20130101, end: 2020
  2. REMICADE [Suspect]
     Active Substance: INFLIXIMAB
     Indication: Product used for unknown indication
     Route: 065
     Dates: end: 202501
  3. ELIQUIS [Concomitant]
     Active Substance: APIXABAN
     Indication: Product used for unknown indication

REACTIONS (10)
  - Atrial fibrillation [Unknown]
  - Therapeutic product effect decreased [Unknown]
  - Drug specific antibody present [Unknown]
  - Disease risk factor [Unknown]
  - Colitis ulcerative [Recovered/Resolved]
  - Blood bilirubin abnormal [Unknown]
  - Colitis ulcerative [Unknown]
  - Drug specific antibody present [Unknown]
  - Fall [Unknown]
  - Hip arthroplasty [Unknown]

NARRATIVE: CASE EVENT DATE: 20150101
